FAERS Safety Report 9433529 (Version 5)
Quarter: 2014Q1

REPORT INFORMATION
  Report Type: Spontaneous
  Country: US (occurrence: US)
  Receive Date: 20130731
  Receipt Date: 20140221
  Transmission Date: 20141002
  Serious: Yes (Hospitalization)
  Sender: FDA-Public Use
  Company Number: US-GILEAD-2013-0080476

PATIENT
  Age: 72 Year
  Sex: Female
  Weight: 71.2 kg

DRUGS (26)
  1. LETAIRIS [Suspect]
     Indication: PULMONARY ARTERIAL HYPERTENSION
     Dosage: 10 MG, UNK
     Route: 048
     Dates: start: 20121017
  2. TYVASO [Suspect]
     Indication: PRODUCT USED FOR UNKNOWN INDICATION
     Dosage: 9 INHALATIONS, QID
     Route: 055
  3. SENNA                              /00571901/ [Concomitant]
  4. ONDANSETRON [Concomitant]
  5. FLUTICASONE [Concomitant]
  6. NAPHAZOLINE [Concomitant]
  7. ALBUTEROL SULFATE [Concomitant]
  8. TRAMADOL [Concomitant]
  9. ASPIRIN [Concomitant]
  10. SIMETHICONE [Concomitant]
  11. CALCIUM CITRATE WITH VITAMIN D [Concomitant]
  12. ASCORBIC ACID [Concomitant]
  13. MULTIVITAMIN                       /07504101/ [Concomitant]
  14. ACETAMINOPHEN [Concomitant]
  15. OMEGA-3 FATTY ACIDS [Concomitant]
  16. LISINOPRIL [Concomitant]
  17. HYDROCHLOROTHIAZIDE [Concomitant]
  18. GEMFIBROZIL [Concomitant]
  19. ETODOLAC [Concomitant]
  20. VITAMIN B-12 [Concomitant]
  21. BECLOMETHASONE                     /00212602/ [Concomitant]
  22. NITROGLYCERIN [Concomitant]
  23. LANSOPRAZOLE [Concomitant]
  24. SIMVASTATIN [Concomitant]
  25. LORATADINE W/PSEUDOEPHEDRINE [Concomitant]
  26. FLUOXETINE [Concomitant]

REACTIONS (7)
  - Diarrhoea [Recovered/Resolved]
  - Diarrhoea [Unknown]
  - Diarrhoea [Not Recovered/Not Resolved]
  - Abdominal pain [Recovered/Resolved]
  - Vomiting [Recovered/Resolved]
  - Vomiting [Unknown]
  - Vomiting [Not Recovered/Not Resolved]
